FAERS Safety Report 23261200 (Version 1)
Quarter: 2023Q4

REPORT INFORMATION
  Report Type: Spontaneous
  Country: US (occurrence: US)
  Receive Date: 20231205
  Receipt Date: 20231205
  Transmission Date: 20240110
  Serious: No
  Sender: FDA-Public Use
  Company Number: US-CELLTRION INC.-2023US014978

PATIENT

DRUGS (2)
  1. TRUXIMA [Suspect]
     Active Substance: RITUXIMAB-ABBS
     Indication: Rheumatoid arthritis
     Dosage: 1000 MG 0, 2 Q 6 MO.
     Route: 065
     Dates: end: 20221026
  2. TRUXIMA [Suspect]
     Active Substance: RITUXIMAB-ABBS
     Dosage: UNK
     Route: 065
     Dates: start: 20230214

REACTIONS (5)
  - Pruritus [Recovering/Resolving]
  - Urticaria [Recovering/Resolving]
  - Arthralgia [Recovering/Resolving]
  - Adverse drug reaction [Recovering/Resolving]
  - Intentional product use issue [Unknown]

NARRATIVE: CASE EVENT DATE: 20230214
